FAERS Safety Report 8820861 (Version 1)
Quarter: 2012Q4

REPORT INFORMATION
  Report Type: 
  Country: US (occurrence: US)
  Receive Date: 20121002
  Receipt Date: 20121002
  Transmission Date: 20130627
  Serious: Yes (Life-Threatening, Other)
  Sender: FDA-Public Use
  Company Number: US-ROCHE-1138921

PATIENT
  Age: 49 Year
  Sex: Female

DRUGS (12)
  1. PEG-INTERFERON ALFA 2A [Suspect]
     Indication: HEPATITIS C
     Route: 065
  2. PEG-INTERFERON ALFA 2A [Suspect]
     Route: 065
  3. RIBAVIRIN [Suspect]
     Indication: HEPATITIS C
     Route: 065
  4. MYCOPHENOLATE MOFETIL [Suspect]
     Indication: IMMUNOSUPPRESSION
  5. CYCLOSPORINE [Concomitant]
     Route: 065
  6. PREDNISONE [Concomitant]
     Dosage: 2,4, 20mg
     Route: 065
  7. PANTOPRAZOLE [Concomitant]
     Route: 065
  8. NIFEDIPINE [Concomitant]
     Route: 065
  9. LASIX [Concomitant]
     Route: 065
  10. URSODEOXYCHOLIC ACID [Concomitant]
     Route: 065
  11. ATENOLOL [Concomitant]
     Route: 065
  12. INSULIN [Concomitant]

REACTIONS (3)
  - Transplant failure [Unknown]
  - Autoimmune hepatitis [Unknown]
  - Herpes zoster [Recovering/Resolving]
